FAERS Safety Report 6664652-8 (Version None)
Quarter: 2010Q1

REPORT INFORMATION
  Report Type: 
  Country: None (occurrence: None)
  Receive Date: 20100330
  Receipt Date: 20100326
  Transmission Date: 20100710
  Serious: Yes (Death, Hospitalization, Other)
  Sender: FDA-Public Use
  Company Number: 2008SP008669

PATIENT
  Age: 56 Year
  Sex: Female
  Weight: 45 kg

DRUGS (29)
  1. TEMODAL [Suspect]
     Indication: MALIGNANT OLIGODENDROGLIOMA
     Dosage: 200 MG/M2; QD; PO
     Route: 048
     Dates: start: 20050215, end: 20060831
  2. TEMODAL [Suspect]
     Indication: MALIGNANT OLIGODENDROGLIOMA
     Dosage: 200 MG/M2; QD; PO
     Route: 048
     Dates: start: 20060929, end: 20061003
  3. TEMODAL [Suspect]
     Indication: MALIGNANT OLIGODENDROGLIOMA
     Dosage: 200 MG/M2; QD; PO
     Route: 048
     Dates: start: 20061028, end: 20061102
  4. TEMODAL [Suspect]
     Indication: MALIGNANT OLIGODENDROGLIOMA
     Dosage: 200 MG/M2; QD; PO
     Route: 048
     Dates: start: 20061124, end: 20061128
  5. TEMODAL [Suspect]
     Indication: MALIGNANT OLIGODENDROGLIOMA
     Dosage: 200 MG/M2; QD; PO
     Route: 048
     Dates: start: 20061223, end: 20061227
  6. TEMODAL [Suspect]
     Indication: MALIGNANT OLIGODENDROGLIOMA
     Dosage: 200 MG/M2; QD; PO
     Route: 048
     Dates: start: 20070120, end: 20070124
  7. TEMODAL [Suspect]
     Indication: MALIGNANT OLIGODENDROGLIOMA
     Dosage: 200 MG/M2; QD; PO
     Route: 048
     Dates: start: 20070706, end: 20070710
  8. TEMODAL [Suspect]
     Indication: MALIGNANT OLIGODENDROGLIOMA
     Dosage: 200 MG/M2; QD; PO
     Route: 048
     Dates: start: 20070803, end: 20070807
  9. TEMODAL [Suspect]
     Indication: MALIGNANT OLIGODENDROGLIOMA
     Dosage: 200 MG/M2; QD; PO
     Route: 048
     Dates: start: 20070831, end: 20070904
  10. TEMODAL [Suspect]
     Indication: MALIGNANT OLIGODENDROGLIOMA
     Dosage: 200 MG/M2; QD; PO
     Route: 048
     Dates: start: 20070928, end: 20071002
  11. TEMODAL [Suspect]
     Indication: MALIGNANT OLIGODENDROGLIOMA
     Dosage: 200 MG/M2; QD; PO
     Route: 048
     Dates: start: 20071026, end: 20071030
  12. TEMODAL [Suspect]
     Indication: MALIGNANT OLIGODENDROGLIOMA
     Dosage: 200 MG/M2; QD; PO
     Route: 048
     Dates: start: 20071123, end: 20071127
  13. TEMODAL [Suspect]
     Indication: MALIGNANT OLIGODENDROGLIOMA
     Dosage: 200 MG/M2; QD; PO
     Route: 048
     Dates: start: 20071221, end: 20071225
  14. TEMODAL [Suspect]
     Indication: MALIGNANT OLIGODENDROGLIOMA
     Dosage: 200 MG/M2; QD; PO
     Route: 048
     Dates: start: 20080118, end: 20080122
  15. TEMODAL [Suspect]
     Indication: MALIGNANT OLIGODENDROGLIOMA
     Dosage: 200 MG/M2; QD; PO
     Route: 048
     Dates: start: 20080215, end: 20080219
  16. TEMODAL [Suspect]
     Indication: MALIGNANT OLIGODENDROGLIOMA
     Dosage: 200 MG/M2; QD; PO
     Route: 048
     Dates: start: 20080314, end: 20080318
  17. TEMODAL [Suspect]
     Indication: MALIGNANT OLIGODENDROGLIOMA
     Dosage: 200 MG/M2; QD; PO
     Route: 048
     Dates: start: 20080411, end: 20080415
  18. TEMODAL [Suspect]
     Indication: MALIGNANT OLIGODENDROGLIOMA
     Dosage: 200 MG/M2; QD; PO
     Route: 048
     Dates: start: 20080509, end: 20080513
  19. TEMODAL [Suspect]
     Indication: MALIGNANT OLIGODENDROGLIOMA
     Dosage: 200 MG/M2; QD; PO
     Route: 048
     Dates: start: 20080606, end: 20080610
  20. TEMODAL [Suspect]
     Indication: MALIGNANT OLIGODENDROGLIOMA
     Dosage: 200 MG/M2; QD; PO
     Route: 048
     Dates: start: 20080704, end: 20080708
  21. TEMODAL [Suspect]
     Indication: MALIGNANT OLIGODENDROGLIOMA
     Dosage: 200 MG/M2; QD; PO
     Route: 048
     Dates: start: 20080801, end: 20080805
  22. TEMODAL [Suspect]
     Indication: MALIGNANT OLIGODENDROGLIOMA
     Dosage: 200 MG/M2; QD; PO
     Route: 048
     Dates: start: 20080829, end: 20080902
  23. TEMODAL [Suspect]
     Indication: MALIGNANT OLIGODENDROGLIOMA
     Dosage: 200 MG/M2; QD; PO
     Route: 048
     Dates: start: 20080926, end: 20080930
  24. TEMODAL [Suspect]
     Indication: MALIGNANT OLIGODENDROGLIOMA
     Dosage: 200 MG/M2; QD; PO
     Route: 048
     Dates: start: 20081024, end: 20081101
  25. TEMODAL [Suspect]
     Indication: MALIGNANT OLIGODENDROGLIOMA
     Dosage: 200 MG/M2; QD; PO
     Route: 048
     Dates: start: 20081123, end: 20081127
  26. TEMODAL [Suspect]
     Indication: MALIGNANT OLIGODENDROGLIOMA
     Dosage: 200 MG/M2; QD; PO
     Route: 048
     Dates: start: 20081220, end: 20081224
  27. TEGRETOL [Concomitant]
  28. MYSLEE [Concomitant]
  29. ISODINE GARGLE [Concomitant]

REACTIONS (6)
  - CATAPLEXY [None]
  - CONVULSION [None]
  - GASTROINTESTINAL STROMAL TUMOUR [None]
  - HAEMATOCHEZIA [None]
  - NEOPLASM PROGRESSION [None]
  - SHOCK HAEMORRHAGIC [None]
